FAERS Safety Report 6051644-5 (Version None)
Quarter: 2009Q1

REPORT INFORMATION
  Report Type: 
  Country: None (occurrence: None)
  Receive Date: 20090126
  Receipt Date: 20090116
  Transmission Date: 20090719
  Serious: Yes (Life-Threatening, Hospitalization)
  Sender: FDA-Public Use
  Company Number: BR-JNJFOC-20080604016

PATIENT
  Sex: Female
  Weight: 52.7 kg

DRUGS (11)
  1. TMC114 [Suspect]
     Route: 048
  2. TMC114 [Suspect]
     Indication: HIV INFECTION
     Dosage: TEMPORARY STOP
     Route: 048
  3. RITONAVIR [Suspect]
     Route: 048
  4. RITONAVIR [Suspect]
     Indication: HIV INFECTION
     Dosage: TEMPORARY STOP
     Route: 048
  5. ZIDOVUDINE [Suspect]
     Route: 048
  6. ZIDOVUDINE [Suspect]
     Indication: HIV INFECTION
     Route: 048
  7. ENFUVIRTIDE [Suspect]
     Route: 048
  8. ENFUVIRTIDE [Suspect]
     Indication: HIV INFECTION
     Route: 048
  9. DIDANOSINE [Suspect]
     Route: 048
  10. DIDANOSINE [Suspect]
     Indication: HIV INFECTION
     Route: 048
  11. DEPO-PROVERA [Concomitant]
     Indication: CONTRACEPTION
     Route: 030

REACTIONS (2)
  - PORTAL HYPERTENSION [None]
  - UPPER GASTROINTESTINAL HAEMORRHAGE [None]
